FAERS Safety Report 7365871-8 (Version None)
Quarter: 2011Q1

REPORT INFORMATION
  Report Type: 
  Country: None (occurrence: None)
  Receive Date: 20110316
  Receipt Date: 20110316
  Transmission Date: 20110831
  Serious: No
  Sender: FDA-Public Use
  Company Number: None

PATIENT
  Age: 57 Year
  Sex: Female
  Weight: 75.2971 kg

DRUGS (3)
  1. SMZ/TMP-GENERIC BRAND FOR SEPTRA DS 800-160 TAB INTERPHARM [Suspect]
     Indication: RHINITIS
     Dosage: TAKE ONE TWICE A DAY PO
     Route: 048
     Dates: start: 20110226, end: 20110228
  2. SMZ/TMP-GENERIC BRAND FOR SEPTRA DS 800-160 TAB INTERPHARM [Suspect]
     Indication: COUGH
     Dosage: TAKE ONE TWICE A DAY PO
     Route: 048
     Dates: start: 20110226, end: 20110228
  3. SMZ/TMP-GENERIC BRAND FOR SEPTRA DS 800-160 TAB INTERPHARM [Suspect]
     Indication: CHEST PAIN
     Dosage: TAKE ONE TWICE A DAY PO
     Route: 048
     Dates: start: 20110226, end: 20110228

REACTIONS (8)
  - MYALGIA [None]
  - PELVIC PAIN [None]
  - ERYTHEMA [None]
  - NAUSEA [None]
  - PAIN [None]
  - ABDOMINAL DISCOMFORT [None]
  - MUSCLE SPASMS [None]
  - DIZZINESS [None]
